FAERS Safety Report 22596386 (Version 1)
Quarter: 2023Q2

REPORT INFORMATION
  Report Type: Report from Study
  Country: US (occurrence: US)
  Receive Date: 20230613
  Receipt Date: 20230613
  Transmission Date: 20230722
  Serious: Yes (Other)
  Sender: FDA-Public Use
  Company Number: US-ARGENX-2023-ARGX-US001813

PATIENT

DRUGS (2)
  1. EFGARTIGIMOD ALFA-FCAB [Suspect]
     Active Substance: EFGARTIGIMOD ALFA-FCAB
     Indication: Myasthenia gravis
     Dosage: UNK
     Route: 042
     Dates: start: 20230530
  2. VIDAZA [Concomitant]
     Active Substance: AZACITIDINE
     Indication: Blood disorder
     Dosage: UNK

REACTIONS (6)
  - Atrial fibrillation [Unknown]
  - Cardiac ablation [Unknown]
  - Haemoglobin decreased [Unknown]
  - Fatigue [Unknown]
  - Dyspnoea [Unknown]
  - Muscular weakness [Unknown]
